FAERS Safety Report 9289333 (Version 1)
Quarter: 2013Q2

REPORT INFORMATION
  Report Type: Spontaneous
  Country: ES (occurrence: ES)
  Receive Date: 20130514
  Receipt Date: 20130514
  Transmission Date: 20140414
  Serious: Yes (Other)
  Sender: FDA-Public Use
  Company Number: ES-PFIZER INC-2013147127

PATIENT
  Age: 82 Year
  Sex: Male

DRUGS (3)
  1. RAMIPRIL [Suspect]
     Dosage: 5 MG, ONCE DAILY
     Route: 048
     Dates: start: 20130312
  2. DICLOFENAC [Suspect]
     Indication: GOUT
     Dosage: UNK
     Route: 048
     Dates: start: 20130415, end: 20130425
  3. SEGURIL [Suspect]
     Dosage: 40 MG, TWICE DAILY
     Route: 048
     Dates: start: 20130312

REACTIONS (1)
  - Renal failure acute [Unknown]
